FAERS Safety Report 16928928 (Version 1)
Quarter: 2019Q4

REPORT INFORMATION
  Report Type: Spontaneous
  Country: US (occurrence: US)
  Receive Date: 20191017
  Receipt Date: 20191017
  Transmission Date: 20200122
  Serious: No
  Sender: FDA-Public Use
  Company Number: US-ADAREPHARM-2019-US-000001

PATIENT
  Sex: 0

DRUGS (1)
  1. KCL [Suspect]
     Active Substance: POTASSIUM CHLORIDE

REACTIONS (5)
  - Expired product administered [Unknown]
  - Vomiting [Unknown]
  - Product lot number issue [Not Recovered/Not Resolved]
  - Suspected product quality issue [Unknown]
  - Retching [Unknown]
